FAERS Safety Report 6467529-6 (Version None)
Quarter: 2009Q4

REPORT INFORMATION
  Report Type: 
  Country: None (occurrence: None)
  Receive Date: 20091130
  Receipt Date: 20091111
  Transmission Date: 20100525
  Serious: Yes (Congenital Anomaly)
  Sender: FDA-Public Use
  Company Number: 8054410

PATIENT
  Sex: Male

DRUGS (6)
  1. KEPPRA [Suspect]
     Indication: BRAIN NEOPLASM
     Dosage: 2000 MG 2/D TRP
     Route: 064
     Dates: end: 20090529
  2. KEPPRA [Suspect]
     Indication: CONVULSION
     Dosage: 2000 MG 2/D TRP
     Route: 064
     Dates: end: 20090529
  3. LAMICTAL [Concomitant]
  4. LAMICTAL [Concomitant]
  5. MULTI-VITAMIN [Concomitant]
  6. ZYRTEC [Concomitant]

REACTIONS (2)
  - EXOMPHALOS [None]
  - MATERNAL DRUGS AFFECTING FOETUS [None]
